FAERS Safety Report 6018996-3 (Version None)
Quarter: 2008Q4

REPORT INFORMATION
  Report Type: 
  Country: None (occurrence: None)
  Receive Date: 20081224
  Receipt Date: 20081219
  Transmission Date: 20090506
  Serious: Yes (Hospitalization)
  Sender: FDA-Public Use
  Company Number: US-BRISTOL-MYERS SQUIBB COMPANY-14449722

PATIENT
  Age: 37 Year
  Sex: Female
  Weight: 75 kg

DRUGS (6)
  1. ABILIFY [Suspect]
     Indication: MOOD SWINGS
     Dosage: INITIAL DOSE: 2.5MG DAILY
     Dates: start: 20080401
  2. ANTIDEPRESSANT [Concomitant]
     Indication: MOOD SWINGS
  3. PAXIL [Concomitant]
  4. XANAX [Concomitant]
     Dosage: TAKEN FOR YEARS RECENTLY DISCONTINUED
  5. RITALIN [Concomitant]
  6. KEPPRA [Concomitant]
     Dates: start: 20080501

REACTIONS (4)
  - GRAND MAL CONVULSION [None]
  - HYPOACUSIS [None]
  - JOINT LOCK [None]
  - SKULL FRACTURE [None]
